FAERS Safety Report 21121278 (Version 2)
Quarter: 2022Q3

REPORT INFORMATION
  Report Type: Spontaneous
  Country: US (occurrence: US)
  Receive Date: 20220722
  Receipt Date: 20220927
  Transmission Date: 20221026
  Serious: No
  Sender: FDA-Public Use
  Company Number: US-PFIZER INC-202200997693

PATIENT
  Age: 62 Year
  Sex: Female

DRUGS (5)
  1. IBRANCE [Suspect]
     Active Substance: PALBOCICLIB
     Dosage: 125 MG, CYCLIC (DAILY FOR 21 DAYS EVERY 28 DAYS)
     Route: 048
     Dates: start: 201908
  2. LETROZOLE [Concomitant]
     Active Substance: LETROZOLE
     Dosage: UNK
  3. VITAMIN B12 [Concomitant]
     Active Substance: CYANOCOBALAMIN
     Dosage: UNK
  4. VITAMIN D3 [Concomitant]
     Active Substance: CHOLECALCIFEROL
     Dosage: UNK
  5. VITAMINS [Concomitant]
     Active Substance: VITAMINS

REACTIONS (2)
  - Nasopharyngitis [Unknown]
  - White blood cell count decreased [Unknown]
